FAERS Safety Report 8236671 (Version 3)
Quarter: 2015Q2

REPORT INFORMATION
  Report Type: Report from Study
  Country: US (occurrence: US)
  Receive Date: 20111109
  Receipt Date: 20150618
  Transmission Date: 20150821
  Serious: Yes (Other)
  Sender: FDA-Public Use
  Company Number: US-BIOGENIDEC-2011BI008725

PATIENT
  Age: 33 Year
  Sex: Female

DRUGS (4)
  1. SLOW IRON [Concomitant]
     Dates: start: 201107
  2. TYSABRI [Suspect]
     Active Substance: NATALIZUMAB
     Indication: MULTIPLE SCLEROSIS
     Route: 042
     Dates: start: 20100824, end: 20110118
  3. TYSABRI [Suspect]
     Active Substance: NATALIZUMAB
     Indication: MULTIPLE SCLEROSIS
     Route: 042
     Dates: start: 20111207, end: 20131029
  4. PRENATAL VITAMINS [Concomitant]
     Active Substance: VITAMINS

REACTIONS (2)
  - Maternal exposure during pregnancy [Recovered/Resolved]
  - Cephalo-pelvic disproportion [Recovered/Resolved]

NARRATIVE: CASE EVENT DATE: 20110113
